FAERS Safety Report 22306591 (Version 2)
Quarter: 2023Q2

REPORT INFORMATION
  Report Type: Spontaneous
  Country: US (occurrence: US)
  Receive Date: 20230511
  Receipt Date: 20230621
  Transmission Date: 20230722
  Serious: Yes (Other)
  Sender: FDA-Public Use
  Company Number: US-ELI_LILLY_AND_COMPANY-US202305003681

PATIENT
  Age: 57 Year
  Sex: Male

DRUGS (10)
  1. TRULICITY [Suspect]
     Active Substance: DULAGLUTIDE
     Indication: Glycosylated haemoglobin
     Dosage: 4.5 MG, UNKNOWN
     Route: 058
  2. TRULICITY [Suspect]
     Active Substance: DULAGLUTIDE
     Indication: Glycosylated haemoglobin
     Dosage: 4.5 MG, UNKNOWN
     Route: 058
  3. TRULICITY [Suspect]
     Active Substance: DULAGLUTIDE
     Indication: Glycosylated haemoglobin
     Dosage: 4.5 MG, UNKNOWN
     Route: 058
  4. TRULICITY [Suspect]
     Active Substance: DULAGLUTIDE
     Indication: Glycosylated haemoglobin
     Dosage: 4.5 MG, UNKNOWN
     Route: 058
  5. TRULICITY [Suspect]
     Active Substance: DULAGLUTIDE
     Indication: Blood glucose decreased
     Dosage: 4.5 MG, UNKNOWN
     Route: 058
  6. TRULICITY [Suspect]
     Active Substance: DULAGLUTIDE
     Indication: Blood glucose decreased
     Dosage: 4.5 MG, UNKNOWN
     Route: 058
  7. TRULICITY [Suspect]
     Active Substance: DULAGLUTIDE
     Indication: Blood glucose decreased
     Dosage: 4.5 MG, UNKNOWN
     Route: 058
  8. TRULICITY [Suspect]
     Active Substance: DULAGLUTIDE
     Dosage: 4.5 MG, UNKNOWN
     Route: 058
  9. TRULICITY [Suspect]
     Active Substance: DULAGLUTIDE
     Dosage: 4.5 MG, UNKNOWN
     Route: 058
  10. TRULICITY [Suspect]
     Active Substance: DULAGLUTIDE
     Dosage: 4.5 MG, UNKNOWN
     Route: 058

REACTIONS (6)
  - Concussion [Not Recovered/Not Resolved]
  - Fall [Unknown]
  - Diplopia [Not Recovered/Not Resolved]
  - Balance disorder [Not Recovered/Not Resolved]
  - Injection site haemorrhage [Recovered/Resolved]
  - Accidental overdose [Unknown]

NARRATIVE: CASE EVENT DATE: 20230301
